FAERS Safety Report 15215557 (Version 1)
Quarter: 2018Q3

REPORT INFORMATION
  Report Type: Report from Study
  Country: ES (occurrence: ES)
  Receive Date: 20180730
  Receipt Date: 20180730
  Transmission Date: 20181010
  Serious: Yes (Hospitalization)
  Sender: FDA-Public Use
  Company Number: ES-PFIZER INC-2018302542

PATIENT
  Age: 86 Year
  Sex: Female

DRUGS (1)
  1. CLINDAMYCIN HCL [Suspect]
     Active Substance: CLINDAMYCIN HYDROCHLORIDE
     Dosage: UNK
     Route: 048
     Dates: start: 20160722, end: 20160725

REACTIONS (1)
  - Generalised erythema [Recovered/Resolved]

NARRATIVE: CASE EVENT DATE: 20160725
